FAERS Safety Report 6315903-0 (Version None)
Quarter: 2009Q3

REPORT INFORMATION
  Report Type: 
  Country: None (occurrence: None)
  Receive Date: 20090820
  Receipt Date: 20090811
  Transmission Date: 20100115
  Serious: Yes (Life-Threatening, Hospitalization)
  Sender: FDA-Public Use
  Company Number: FR-WYE-H10594909

PATIENT
  Age: 17 Year
  Sex: Female

DRUGS (6)
  1. IBUPROFEN [Suspect]
     Dosage: 1000 MG INGESTED
  2. PRAZSOIN HCL [Suspect]
     Dosage: 75 MG INGESTED
  3. METFORMIN [Suspect]
     Dosage: 3000 MG INGESTED
  4. PREDNISONE [Suspect]
     Dosage: 125 MG INGESTED
  5. AMLODIPINE [Suspect]
     Dosage: 150 MG INGESTED
  6. ACETAMINOPHEN [Suspect]
     Dosage: 4000 MG INGESTED

REACTIONS (6)
  - CIRCULATORY COLLAPSE [None]
  - DRUG TOXICITY [None]
  - INTESTINAL INFARCTION [None]
  - INTESTINAL ISCHAEMIA [None]
  - OVERDOSE [None]
  - VASOPLEGIA SYNDROME [None]
